FAERS Safety Report 20063140 (Version 2)
Quarter: 2023Q1

REPORT INFORMATION
  Report Type: Report from Study
  Country: FR (occurrence: None)
  Receive Date: 20211112
  Receipt Date: 20230131
  Transmission Date: 20230417
  Serious: Yes (Hospitalization)
  Sender: FDA-Public Use
  Company Number: 2021A790087

PATIENT
  Age: 37 Year
  Sex: Female
  Weight: 70 kg

DRUGS (10)
  1. DURVALUMAB [Suspect]
     Active Substance: DURVALUMAB
     Indication: Breast cancer
     Dosage: 1500 MG EVERY 1 CYCLE(S)
     Route: 042
     Dates: start: 20210120, end: 20210929
  2. OLAPARIB [Suspect]
     Active Substance: OLAPARIB
     Indication: Breast cancer
     Dosage: 600 MG EVERY 1 CYCLE(S)
     Route: 048
     Dates: start: 20201221, end: 20210929
  3. FULVESTRANT [Suspect]
     Active Substance: FULVESTRANT
     Indication: Breast cancer
     Dosage: 500 MG EVERY 1 CYCLE(S)
     Route: 030
     Dates: start: 20200221, end: 20210929
  4. GOSERELIN [Suspect]
     Active Substance: GOSERELIN
     Indication: Breast cancer metastatic
     Dosage: 3.6 MILLIGRAM EVERY 1 CYCLE(S)
     Route: 048
     Dates: start: 20201221, end: 20210929
  5. PREGABALIN [Concomitant]
     Active Substance: PREGABALIN
  6. TRAMADOL [Concomitant]
     Active Substance: TRAMADOL
  7. ACETAMINOPHEN [Concomitant]
     Active Substance: ACETAMINOPHEN
  8. LEVOTHYROXINE [Concomitant]
     Active Substance: LEVOTHYROXINE
  9. OXYCODONE HYDROCHLORIDE [Concomitant]
     Active Substance: OXYCODONE HYDROCHLORIDE
  10. OXYCONTIN [Concomitant]
     Active Substance: OXYCODONE HYDROCHLORIDE
     Indication: Immune-mediated hypothyroidism

REACTIONS (1)
  - Tumour invasion [Not Recovered/Not Resolved]

NARRATIVE: CASE EVENT DATE: 20211026
